FAERS Safety Report 9149032 (Version 1)
Quarter: 2013Q1

REPORT INFORMATION
  Report Type: Spontaneous
  Country: CN (occurrence: CN)
  Receive Date: 20130308
  Receipt Date: 20130308
  Transmission Date: 20140127
  Serious: Yes (Other)
  Sender: FDA-Public Use
  Company Number: CN-JNJFOC-20130301296

PATIENT
  Age: 4 Year
  Sex: Male
  Weight: 15 kg

DRUGS (3)
  1. IBUPROFEN [Suspect]
     Route: 048
  2. IBUPROFEN [Suspect]
     Indication: PYREXIA
     Dosage: 4ML, ONCE IN A DAY
     Route: 048
     Dates: start: 20080826, end: 20080827
  3. PARACETAMOL [Suspect]
     Indication: PYREXIA
     Dosage: 2ML, 3 TIMES DAILY
     Route: 048
     Dates: start: 20080826

REACTIONS (1)
  - Urticaria [Recovered/Resolved]
